FAERS Safety Report 5332774-X (Version None)
Quarter: 2007Q2

REPORT INFORMATION
  Report Type: 
  Country: None (occurrence: None)
  Receive Date: 20070523
  Receipt Date: 20070512
  Transmission Date: 20071010
  Serious: Yes (Congenital Anomaly, Other)
  Sender: FDA-Public Use
  Company Number: US-PFIZER INC-2007039083

PATIENT
  Sex: Female
  Weight: 100 kg

DRUGS (1)
  1. DILANTIN [Suspect]
     Indication: EPILEPSY
     Dosage: TEXT:300 MG, 200MG-FREQ:DAILY

REACTIONS (3)
  - BLOOD COUNT ABNORMAL [None]
  - STOMACH DISCOMFORT [None]
  - WEIGHT DECREASED [None]
